FAERS Safety Report 25020980 (Version 2)
Quarter: 2025Q4

REPORT INFORMATION
  Report Type: Report from Study
  Country: EU (occurrence: EU)
  Receive Date: 20250227
  Receipt Date: 20251014
  Transmission Date: 20260117
  Serious: Yes (Hospitalization, Other)
  Sender: ABBVIE
  Company Number: EU-ABBVIE-6150524

PATIENT
  Age: 61 Year
  Sex: Male

DRUGS (1)
  1. RINVOQ [Suspect]
     Active Substance: UPADACITINIB
     Indication: Product used for unknown indication
     Route: 048
     Dates: start: 202102

REACTIONS (6)
  - Intervertebral disc protrusion [Recovered/Resolved]
  - Radiculopathy [Recovered/Resolved]
  - Facet joint syndrome [Unknown]
  - Hypoaesthesia [Unknown]
  - Intervertebral disc protrusion [Unknown]
  - Rhinitis [Unknown]

NARRATIVE: CASE EVENT DATE: 20241204
